FAERS Safety Report 4398906-5 (Version None)
Quarter: 2004Q3

REPORT INFORMATION
  Report Type: 
  Country: None (occurrence: None)
  Receive Date: 20040712
  Receipt Date: 20040622
  Transmission Date: 20050211
  Serious: Yes (Hospitalization, Disabling)
  Sender: FDA-Public Use
  Company Number: US_0406103833

PATIENT
  Age: 65 Year
  Sex: Female

DRUGS (1)
  1. GEMZAR [Suspect]
     Indication: SARCOMA
     Dosage: 13.7 G/M2 OTHER

REACTIONS (7)
  - BLOOD LACTATE DEHYDROGENASE INCREASED [None]
  - CARDIAC FAILURE CONGESTIVE [None]
  - MALNUTRITION [None]
  - PROTHROMBIN TIME PROLONGED [None]
  - RED BLOOD CELL SCHISTOCYTES PRESENT [None]
  - RENAL FAILURE CHRONIC [None]
  - THROMBOTIC MICROANGIOPATHY [None]
